FAERS Safety Report 25427874 (Version 1)
Quarter: 2025Q2

REPORT INFORMATION
  Report Type: Spontaneous
  Country: IT (occurrence: IT)
  Receive Date: 20250612
  Receipt Date: 20250612
  Transmission Date: 20250717
  Serious: Yes (Death, Other)
  Sender: CELLTRION
  Company Number: IT-AMGEN-ITASP2024251141

PATIENT

DRUGS (1)
  1. ADALIMUMAB [Suspect]
     Active Substance: ADALIMUMAB
     Indication: Hidradenitis
     Route: 065

REACTIONS (2)
  - Death [Fatal]
  - Cutaneous T-cell lymphoma [Unknown]
